FAERS Safety Report 7569800-3 (Version None)
Quarter: 2011Q2

REPORT INFORMATION
  Report Type: 
  Country: None (occurrence: None)
  Receive Date: 20110624
  Receipt Date: 20110615
  Transmission Date: 20111010
  Serious: Yes (Hospitalization, Other)
  Sender: FDA-Public Use
  Company Number: US-JNJFOC-20110608908

PATIENT
  Sex: Female
  Weight: 70.31 kg

DRUGS (5)
  1. SYNTHROID [Concomitant]
     Indication: THYROID DISORDER
     Route: 048
  2. MOTRIN [Concomitant]
     Indication: ARTHRALGIA
     Route: 048
  3. CONJUGATED ESTROGENS [Concomitant]
     Indication: MENOPAUSE
     Route: 048
  4. ELMIRON [Suspect]
     Indication: CYSTITIS INTERSTITIAL
     Route: 048
     Dates: start: 19980101
  5. CALCIUM CARBONATE [Concomitant]
     Route: 065

REACTIONS (9)
  - CHOLECYSTECTOMY [None]
  - DISCOMFORT [None]
  - HYPERCHLORHYDRIA [None]
  - INTERVERTEBRAL DISC COMPRESSION [None]
  - INCORRECT DOSE ADMINISTERED [None]
  - VOMITING [None]
  - DYSURIA [None]
  - NAUSEA [None]
  - PAIN [None]
